FAERS Safety Report 8956761 (Version 1)
Quarter: 2012Q4

REPORT INFORMATION
  Report Type: 
  Country: US (occurrence: US)
  Receive Date: 20121210
  Receipt Date: 20121210
  Transmission Date: 20130627
  Serious: Yes (Other)
  Sender: FDA-Public Use
  Company Number: CHPA2012US024460

PATIENT
  Sex: Female

DRUGS (4)
  1. BENEFIBER W/ WHEAT DEXTRIN [Suspect]
     Indication: DIARRHOEA
     Dosage: 1 tablet a day
     Route: 048
     Dates: start: 2008
  2. BENEFIBER W/ WHEAT DEXTRIN [Suspect]
     Indication: DIARRHOEA
     Dosage: Unk, Unk
     Route: 048
     Dates: start: 2008, end: 2008
  3. CITRACAL [Concomitant]
     Indication: DIARRHOEA
     Dosage: UNK
     Dates: start: 20121126
  4. ACIDOPHILUS [Concomitant]
     Dosage: DF, once per day

REACTIONS (5)
  - Bronchitis [Recovered/Resolved]
  - Diarrhoea [Not Recovered/Not Resolved]
  - Abdominal pain upper [Not Recovered/Not Resolved]
  - Off label use [Unknown]
  - Expired drug administered [Unknown]
